FAERS Safety Report 5912943-8 (Version None)
Quarter: 2008Q4

REPORT INFORMATION
  Report Type: 
  Country: None (occurrence: None)
  Receive Date: 20081006
  Receipt Date: 20080924
  Transmission Date: 20090506
  Serious: Yes (Life-Threatening, Hospitalization, Other)
  Sender: FDA-Public Use
  Company Number: IMP_03894_2008

PATIENT
  Age: 33 Year
  Sex: Female

DRUGS (1)
  1. MINOCYCLINE HCL [Suspect]
     Indication: ACNE
     Dosage: DF

REACTIONS (7)
  - ACUTE HEPATIC FAILURE [None]
  - AUTOIMMUNE DISORDER [None]
  - ENCEPHALOPATHY [None]
  - HAEMODIALYSIS [None]
  - INTERNATIONAL NORMALISED RATIO INCREASED [None]
  - LIVER TRANSPLANT [None]
  - RENAL FAILURE [None]
